FAERS Safety Report 9098278 (Version 9)
Quarter: 2018Q3

REPORT INFORMATION
  Report Type: Spontaneous
  Country: BR (occurrence: BR)
  Receive Date: 20130213
  Receipt Date: 20180927
  Transmission Date: 20181010
  Serious: Yes (Hospitalization, Other)
  Sender: FDA-Public Use
  Company Number: BR-AMGEN-BRASP2013009157

PATIENT
  Age: 50 Year
  Sex: Male
  Weight: 40 kg

DRUGS (9)
  1. INDOCID [Concomitant]
     Active Substance: INDOMETHACIN
     Dosage: 50 MG
  2. INDOCID [Concomitant]
     Active Substance: INDOMETHACIN
     Dosage: 75 MG
  3. OMEPRAZOLE. [Concomitant]
     Active Substance: OMEPRAZOLE
     Dosage: UNK
  4. INDOCID [Concomitant]
     Active Substance: INDOMETHACIN
     Dosage: 75 MG
  5. PREDNISONE. [Concomitant]
     Active Substance: PREDNISONE
     Dosage: 25 MG, UNK
  6. ENBREL [Suspect]
     Active Substance: ETANERCEPT
     Indication: RHEUMATOID ARTHRITIS
     Dosage: 50 MG, ONCE WEEKLY
     Route: 058
     Dates: start: 2013
  7. VASOGARD [Concomitant]
     Active Substance: CILOSTAZOL
     Dosage: UNK
     Dates: start: 1998
  8. INDOCID [Concomitant]
     Active Substance: INDOMETHACIN
     Dosage: 100 MG, UNK
     Dates: start: 1977
  9. AAS [Concomitant]
     Active Substance: ASPIRIN
     Dosage: UNK
     Dates: start: 1998

REACTIONS (5)
  - Localised infection [Recovered/Resolved]
  - Impaired healing [Recovered/Resolved]
  - Disease recurrence [Recovered/Resolved]
  - Wound [Recovered/Resolved]
  - Fear [Recovered/Resolved]
